FAERS Safety Report 11505593 (Version 1)
Quarter: 2015Q3

REPORT INFORMATION
  Report Type: Spontaneous
  Country: US (occurrence: US)
  Receive Date: 20150915
  Receipt Date: 20150915
  Transmission Date: 20151125
  Serious: Yes (Other)
  Sender: FDA-Public Use
  Company Number: US-ROCHE-777681

PATIENT
  Age: 46 Year
  Sex: Male

DRUGS (4)
  1. RIBAVIRIN. [Suspect]
     Active Substance: RIBAVIRIN
     Indication: CHRONIC HEPATITIS C
     Route: 065
  2. RIBAVIRIN. [Suspect]
     Active Substance: RIBAVIRIN
     Dosage: RESTARTED AFTER 3 WEEKS, TOTAL DURATION 52 WEEKS
     Route: 065
  3. PEGASYS [Suspect]
     Active Substance: PEGINTERFERON ALFA-2A
     Dosage: RESTARTED AFTER 3 WEEKS, TOTAL DURATION 52 WEEKS
     Route: 065
  4. PEGASYS [Suspect]
     Active Substance: PEGINTERFERON ALFA-2A
     Indication: CHRONIC HEPATITIS C
     Route: 065

REACTIONS (3)
  - Erythema nodosum [Unknown]
  - Sarcoidosis [Unknown]
  - Cryoglobulins [Unknown]
